FAERS Safety Report 6444953-9 (Version None)
Quarter: 2009Q4

REPORT INFORMATION
  Report Type: 
  Country: None (occurrence: None)
  Receive Date: 20091118
  Receipt Date: 20090812
  Transmission Date: 20100525
  Serious: No
  Sender: FDA-Public Use
  Company Number: US-BAYER-200930311NA

PATIENT
  Age: 22 Year
  Sex: Female
  Weight: 61 kg

DRUGS (3)
  1. MAGNEVIST [Suspect]
     Indication: NUCLEAR MAGNETIC RESONANCE IMAGING BRAIN
     Dosage: TOTAL DAILY DOSE: 20 ML  UNIT DOSE: 50 ML
     Route: 042
     Dates: start: 20090811, end: 20090811
  2. PREVACID [Concomitant]
     Dosage: TOTAL DAILY DOSE: 30 MG
  3. SUCRALFATE [Concomitant]
     Dosage: TOTAL DAILY DOSE: 10 ML

REACTIONS (6)
  - DYSPNOEA [None]
  - EYELID OEDEMA [None]
  - NASAL CONGESTION [None]
  - PRURITUS [None]
  - RASH ERYTHEMATOUS [None]
  - URTICARIA [None]
